FAERS Safety Report 17432412 (Version 4)
Quarter: 2020Q4

REPORT INFORMATION
  Report Type: Spontaneous
  Country: JP (occurrence: JP)
  Receive Date: 20200218
  Receipt Date: 20201119
  Transmission Date: 20210113
  Serious: Yes (Life-Threatening, Hospitalization, Other)
  Sender: FDA-Public Use
  Company Number: JP-009507513-2002JPN001424J

PATIENT
  Age: 83 Year
  Sex: Female
  Weight: 30 kg

DRUGS (2)
  1. KEYTRUDA [Suspect]
     Active Substance: PEMBROLIZUMAB
     Indication: LUNG ADENOCARCINOMA STAGE IV
     Dosage: 200 MILLIGRAM, Q3W
     Route: 041
     Dates: start: 20181217, end: 20190708
  2. TECENTRIQ [Suspect]
     Active Substance: ATEZOLIZUMAB
     Indication: LUNG ADENOCARCINOMA STAGE IV
     Dosage: 1200 MILLIGRAM, Q3W
     Route: 041
     Dates: start: 20190729, end: 20190930

REACTIONS (5)
  - Myoclonic epilepsy [Recovering/Resolving]
  - Depressed level of consciousness [Recovering/Resolving]
  - Malignant neoplasm progression [Unknown]
  - Altered state of consciousness [Recovering/Resolving]
  - Immune-mediated encephalopathy [Unknown]

NARRATIVE: CASE EVENT DATE: 201907
